FAERS Safety Report 19781855 (Version 1)
Quarter: 2021Q3

REPORT INFORMATION
  Report Type: Spontaneous
  Country: US (occurrence: US)
  Receive Date: 20210902
  Receipt Date: 20210902
  Transmission Date: 20211014
  Serious: No
  Sender: FDA-Public Use
  Company Number: US-ENDO PHARMACEUTICALS INC-2021-000968

PATIENT
  Age: 37 Year
  Sex: Female

DRUGS (4)
  1. PEPCID AC [Suspect]
     Active Substance: FAMOTIDINE
     Indication: DRUG HYPERSENSITIVITY
     Dosage: UNK UNKNOWN, UNKNOWN
     Route: 065
     Dates: start: 202101
  2. BENADRYL [Suspect]
     Active Substance: DIPHENHYDRAMINE HYDROCHLORIDE
     Indication: DRUG HYPERSENSITIVITY
     Dosage: UNK UNKNOWN, UNKNOWN
     Route: 065
     Dates: start: 202101
  3. ZYRTEC [Suspect]
     Active Substance: CETIRIZINE HYDROCHLORIDE
     Indication: DRUG HYPERSENSITIVITY
     Dosage: UNK UNKNOWN, UNKNOWN
     Route: 065
     Dates: start: 202101
  4. PREDNISONE. [Suspect]
     Active Substance: PREDNISONE
     Indication: DRUG HYPERSENSITIVITY
     Dosage: UNK UNKNOWN, UNKNOWN
     Route: 065
     Dates: start: 202101

REACTIONS (2)
  - Exposure during pregnancy [Unknown]
  - Drug ineffective [Not Recovered/Not Resolved]

NARRATIVE: CASE EVENT DATE: 202101
